FAERS Safety Report 8481660-5 (Version None)
Quarter: 2012Q3

REPORT INFORMATION
  Report Type: 
  Country: None (occurrence: None)
  Receive Date: 20120702
  Receipt Date: 20120630
  Transmission Date: 20120928
  Serious: No
  Sender: FDA-Public Use
  Company Number: JP-EISAI INC-E2020-10784-SPO-JP

PATIENT
  Age: 75 Year
  Sex: Female

DRUGS (7)
  1. ARICEPT [Suspect]
     Indication: DEMENTIA ALZHEIMER'S TYPE
     Route: 048
     Dates: start: 20120421, end: 20120422
  2. CELEBREX [Concomitant]
     Route: 048
  3. MUCOSTA [Concomitant]
     Route: 048
  4. ASPIRIN [Concomitant]
     Route: 048
  5. AMLODIPINE [Concomitant]
     Route: 048
  6. ONEALFA [Concomitant]
     Route: 048
  7. ADONA [Concomitant]
     Route: 048

REACTIONS (1)
  - ANAPHYLACTOID REACTION [None]
